FAERS Safety Report 9638007 (Version 1)
Quarter: 2013Q4

REPORT INFORMATION
  Report Type: Spontaneous
  Country: AT (occurrence: AT)
  Receive Date: 20131022
  Receipt Date: 20131022
  Transmission Date: 20140711
  Serious: Yes (Other)
  Sender: FDA-Public Use
  Company Number: PHHY2013AT118394

PATIENT
  Sex: Male

DRUGS (2)
  1. VOLTAREN [Suspect]
     Indication: PAIN
     Dosage: UNK UKN, UNK
     Route: 048
  2. EBETREXAT (METHOTREXATE) [Concomitant]
     Indication: POLYARTHRITIS
     Dosage: UNK UKN, UNK

REACTIONS (2)
  - Diverticulitis [Unknown]
  - Gastrointestinal haemorrhage [Recovered/Resolved]
